FAERS Safety Report 11379931 (Version 2)
Quarter: 2015Q3

REPORT INFORMATION
  Report Type: Report from Study
  Country: PL (occurrence: PL)
  Receive Date: 20150814
  Receipt Date: 20150922
  Transmission Date: 20151125
  Serious: Yes (Hospitalization)
  Sender: FDA-Public Use
  Company Number: PL-EISAI MEDICAL RESEARCH-EC-2015-009033

PATIENT
  Age: 72 Year
  Sex: Male
  Weight: 98.1 kg

DRUGS (17)
  1. KLOPIDOGREL [Concomitant]
     Route: 048
     Dates: start: 2006, end: 20150727
  2. LOSARTAN. [Concomitant]
     Active Substance: LOSARTAN
     Route: 048
     Dates: start: 20141215, end: 20150729
  3. PANTOPRAZOLE [Concomitant]
     Active Substance: PANTOPRAZOLE SODIUM
     Route: 048
     Dates: start: 20150727
  4. NITROGLICERYN [Concomitant]
     Route: 060
     Dates: start: 2006
  5. HEPATIL [Concomitant]
     Indication: HEPATIC STEATOSIS
     Route: 048
     Dates: start: 2012, end: 20150729
  6. ATORVASTATIN [Concomitant]
     Active Substance: ATORVASTATIN
     Route: 048
     Dates: start: 2007, end: 20150729
  7. KLOPIDOGREL [Concomitant]
     Route: 048
     Dates: start: 20150729
  8. GLIMEPIRIDUM [Concomitant]
     Indication: DIABETES MELLITUS
     Route: 048
     Dates: start: 2013, end: 20150729
  9. IMOVANE [Concomitant]
     Active Substance: ZOPICLONE
     Route: 048
     Dates: start: 20150428, end: 20150729
  10. LORCASERIN [Suspect]
     Active Substance: LORCASERIN HYDROCHLORIDE
     Indication: WEIGHT CONTROL
     Route: 048
     Dates: start: 20150127, end: 20150728
  11. METOPROLOL [Concomitant]
     Active Substance: METOPROLOL
     Route: 048
     Dates: start: 2006
  12. HYDROCHLOROTIAZIDE [Concomitant]
     Active Substance: HYDROCHLOROTHIAZIDE
     Route: 048
     Dates: start: 20141215, end: 20150729
  13. TAMSUDIL [Concomitant]
     Route: 048
     Dates: start: 201407, end: 20150729
  14. METFORMIN [Concomitant]
     Active Substance: METFORMIN HYDROCHLORIDE
     Indication: DIABETES MELLITUS
     Route: 048
     Dates: start: 2013, end: 20150729
  15. INSULIN HUMULIN N [Concomitant]
     Route: 058
     Dates: start: 2013
  16. LEVOXA [Concomitant]
     Active Substance: LEVOFLOXACIN
     Route: 048
     Dates: start: 201407, end: 20150729
  17. ASPIRYN [Concomitant]
     Route: 048
     Dates: start: 2006

REACTIONS (1)
  - Drug-induced liver injury [Recovering/Resolving]

NARRATIVE: CASE EVENT DATE: 20150727
